FAERS Safety Report 13353751 (Version 1)
Quarter: 2017Q1

REPORT INFORMATION
  Report Type: Report from Study
  Country: US (occurrence: US)
  Receive Date: 20170321
  Receipt Date: 20170321
  Transmission Date: 20170429
  Serious: No
  Sender: FDA-Public Use
  Company Number: US-AMGEN-USASL2017042679

PATIENT
  Age: 52 Year
  Sex: Female

DRUGS (1)
  1. ENBREL [Suspect]
     Active Substance: ETANERCEPT
     Indication: PSORIATIC ARTHROPATHY
     Dosage: UNK UNK, UNK
     Route: 065

REACTIONS (7)
  - Fatigue [Unknown]
  - Dysstasia [Recovering/Resolving]
  - Arthralgia [Unknown]
  - Injury [Unknown]
  - Memory impairment [Unknown]
  - Mobility decreased [Unknown]
  - Psoriasis [Unknown]
